FAERS Safety Report 25034464 (Version 4)
Quarter: 2025Q2

REPORT INFORMATION
  Report Type: Report from Study
  Country: BR (occurrence: BR)
  Receive Date: 20250304
  Receipt Date: 20250604
  Transmission Date: 20250717
  Serious: Yes (Other)
  Sender: NOVO NORDISK
  Company Number: BR-NOVOPROD-1377453

PATIENT
  Age: 7 Year
  Sex: Female
  Weight: 19 kg

DRUGS (2)
  1. FIASP [Suspect]
     Active Substance: INSULIN ASPART
     Indication: Type 1 diabetes mellitus
     Dates: start: 202306
  2. TRESIBA [Suspect]
     Active Substance: INSULIN DEGLUDEC
     Indication: Type 1 diabetes mellitus

REACTIONS (6)
  - Hyperglycaemia [Recovered/Resolved]
  - Hypoglycaemia [Unknown]
  - Device leakage [Not Recovered/Not Resolved]
  - Liquid product physical issue [Unknown]
  - Diabetes mellitus inadequate control [Unknown]
  - Malaise [Unknown]

NARRATIVE: CASE EVENT DATE: 20250204
